FAERS Safety Report 24826084 (Version 1)
Quarter: 2025Q1

REPORT INFORMATION
  Report Type: Report from Study
  Country: GB (occurrence: GB)
  Receive Date: 20250109
  Receipt Date: 20250109
  Transmission Date: 20250409
  Serious: Yes (Hospitalization)
  Sender: ROCHE
  Company Number: GB-ROCHE-1753955

PATIENT
  Age: 40 Year
  Sex: Female

DRUGS (34)
  1. TRASTUZUMAB [Suspect]
     Active Substance: TRASTUZUMAB
     Indication: Breast cancer metastatic
     Dosage: 651 MG, EVERY 3 WEEKS, LOADING DOSEPLANNED NUMBER OF CYCLES COMPLETED; CUMULATIVE DOSE: 459.04
     Route: 041
     Dates: start: 20160323, end: 20160323
  2. TRASTUZUMAB [Suspect]
     Active Substance: TRASTUZUMAB
     Dosage: 483 MG, CYCLIC (483 MG, EVERY 3 WEEKS), DOSE FORM: 230
     Route: 042
     Dates: start: 20160413
  3. TRASTUZUMAB [Suspect]
     Active Substance: TRASTUZUMAB
     Dosage: 483 MG, CYCLIC (483 MG, EVERY 3 WEEKS), DOSE FORM: 230 (CUMULATIVE DOSE TO FIRST REACTION: 459.042MG
     Route: 042
     Dates: start: 20160413
  4. PERTUZUMAB [Suspect]
     Active Substance: PERTUZUMAB
     Indication: Breast cancer metastatic
     Dosage: 840 MILLIGRAM, ONCE A DAY(LOADING DOSE:PLANNED NUMBER OF CYCLES COMPLETED), DOSE FORM: 230
     Route: 042
     Dates: start: 20160324, end: 20160324
  5. PERTUZUMAB [Suspect]
     Active Substance: PERTUZUMAB
     Dosage: 420 MG, TIW (EVERY 3 WEEKS ), DOSE FORM: 230
     Route: 042
     Dates: start: 20160413
  6. PERTUZUMAB [Suspect]
     Active Substance: PERTUZUMAB
     Dosage: 420 MILLIGRAM(420 MG, Q3W)UNK
     Route: 042
  7. PERTUZUMAB [Suspect]
     Active Substance: PERTUZUMAB
     Dosage: 1260 MILLIGRAM, 1 WEEK (420 MILLIGRAM, 3XW ) (PAHARMACEUTICAL DOSE FORM: 230)
     Route: 042
  8. PERTUZUMAB [Suspect]
     Active Substance: PERTUZUMAB
     Route: 042
  9. PERTUZUMAB [Suspect]
     Active Substance: PERTUZUMAB
     Dosage: 1260 MILLIGRAM, 1 WEEK (420 MILLIGRAM, 3XW ) DOSE FORM: 230
     Route: 042
  10. PERTUZUMAB [Suspect]
     Active Substance: PERTUZUMAB
     Dosage: 1260 MILLIGRAM, 1/WEEK, 420 MILLIGRAM(420 MG, Q3W)UNK, DOSE FORM: 230
     Route: 042
  11. PERTUZUMAB [Suspect]
     Active Substance: PERTUZUMAB
     Route: 042
  12. TAMOXIFEN CITRATE [Suspect]
     Active Substance: TAMOXIFEN CITRATE
     Indication: Breast cancer metastatic
     Route: 048
     Dates: start: 201603
  13. DOCETAXEL [Suspect]
     Active Substance: DOCETAXEL
     Indication: Breast cancer metastatic
     Dosage: 140 MG, ONCE IN 2 WEEKS, DOSE FORM: 230
     Route: 042
     Dates: start: 20160324, end: 20160526
  14. DOCETAXEL [Suspect]
     Active Substance: DOCETAXEL
     Dosage: 110 MG, CYCLIC EVERY 2 WEEKS (THERAPY DISCONTINUED: PLANNED NUMBER OF CYCLES COMPLETED)
     Route: 042
     Dates: start: 20160526, end: 20160707
  15. DENOSUMAB [Concomitant]
     Active Substance: DENOSUMAB
     Indication: Breast cancer metastatic
     Route: 058
  16. CITALOPRAM [Concomitant]
     Active Substance: CITALOPRAM
     Indication: Thrombosis prophylaxis
  17. DEXAMETHASONE [Concomitant]
     Active Substance: DEXAMETHASONE
     Indication: Breast cancer metastatic
     Route: 042
  18. ACETAMINOPHEN [Concomitant]
     Active Substance: ACETAMINOPHEN
  19. OMEPRAZOLE [Concomitant]
     Active Substance: OMEPRAZOLE
     Indication: Dyspepsia
     Route: 048
     Dates: start: 20170727
  20. OMEPRAZOLE [Concomitant]
     Active Substance: OMEPRAZOLE
     Indication: Dyspepsia
     Route: 065
     Dates: start: 20170727
  21. OMEPRAZOLE [Concomitant]
     Active Substance: OMEPRAZOLE
  22. OMEPRAZOLE [Concomitant]
     Active Substance: OMEPRAZOLE
  23. OMEPRAZOLE [Concomitant]
     Active Substance: OMEPRAZOLE
     Route: 048
     Dates: start: 20170727
  24. DALTEPARIN [Concomitant]
     Active Substance: DALTEPARIN
     Indication: Thrombosis prophylaxis
  25. DALTEPARIN [Concomitant]
     Active Substance: DALTEPARIN
     Indication: Thrombosis prophylaxis
     Route: 058
     Dates: start: 20160802, end: 20160809
  26. DALTEPARIN [Concomitant]
     Active Substance: DALTEPARIN
     Route: 065
  27. DALTEPARIN [Concomitant]
     Active Substance: DALTEPARIN
     Route: 058
     Dates: start: 20160802, end: 20160809
  28. DALTEPARIN [Concomitant]
     Active Substance: DALTEPARIN
     Route: 058
     Dates: start: 20160802, end: 20160809
  29. DALTEPARIN [Concomitant]
     Active Substance: DALTEPARIN
     Route: 065
  30. PYRIDOXINE [Concomitant]
     Active Substance: PYRIDOXINE
  31. SANDOZ-K [Concomitant]
  32. CEFTRIAXONE [Concomitant]
     Active Substance: CEFTRIAXONE
  33. GENTAMICIN [Concomitant]
     Active Substance: GENTAMICIN
  34. GLICLAZIDE [Concomitant]
     Active Substance: GLICLAZIDE

REACTIONS (10)
  - Joint stiffness [Recovered/Resolved]
  - Atrophic vulvovaginitis [Recovered/Resolved]
  - Musculoskeletal stiffness [Recovered/Resolved]
  - Infection [Recovered/Resolved]
  - Fatigue [Recovered/Resolved]
  - Atrial thrombosis [Recovered/Resolved]
  - Diarrhoea [Not Recovered/Not Resolved]
  - Influenza like illness [Recovered/Resolved]
  - Pain in extremity [Recovered/Resolved]
  - Off label use [Unknown]

NARRATIVE: CASE EVENT DATE: 20160324
